FAERS Safety Report 6852038-2 (Version None)
Quarter: 2010Q3

REPORT INFORMATION
  Report Type: 
  Country: None (occurrence: None)
  Receive Date: 20100717
  Receipt Date: 20071205
  Transmission Date: 20110219
  Serious: No
  Sender: FDA-Public Use
  Company Number: US-PFIZER INC-2007092944

PATIENT
  Sex: Male
  Weight: 72.6 kg

DRUGS (4)
  1. CHANTIX [Suspect]
     Indication: SMOKING CESSATION THERAPY
     Dates: start: 20070925
  2. ATORVASTATIN [Concomitant]
  3. MIDODRINE HYDROCHLORIDE [Concomitant]
  4. TYLENOL [Concomitant]

REACTIONS (1)
  - DYSURIA [None]
